FAERS Safety Report 24756657 (Version 3)
Quarter: 2025Q4

REPORT INFORMATION
  Report Type: Report from Study
  Country: GB (occurrence: GB)
  Receive Date: 20241220
  Receipt Date: 20251003
  Transmission Date: 20260118
  Serious: Yes (Other)
  Sender: SANDOZ
  Company Number: GB-002147023-NVSC2021GB106023

PATIENT
  Sex: Male

DRUGS (1)
  1. OMNITROPE [Suspect]
     Active Substance: SOMATROPIN
     Indication: Hypopituitarism
     Dosage: 0.2 MG, QD (5MG/1.5ML SOLUTION FOR INJECTION CARTRIDGES), 5 CARTRIDGE
     Route: 058

REACTIONS (5)
  - Transient ischaemic attack [Unknown]
  - Dementia [Not Recovered/Not Resolved]
  - Vitamin D deficiency [Unknown]
  - Inappropriate schedule of product administration [Unknown]
  - Intentional dose omission [Unknown]
